FAERS Safety Report 23425506 (Version 2)
Quarter: 2024Q1

REPORT INFORMATION
  Report Type: Spontaneous
  Country: US (occurrence: US)
  Receive Date: 20240122
  Receipt Date: 20240123
  Transmission Date: 20240410
  Serious: Yes (Death)
  Sender: FDA-Public Use
  Company Number: US-Noden Pharma DAC-POI0580202400077

PATIENT
  Age: 55 Year
  Sex: Male

DRUGS (3)
  1. GOPRELTO [Suspect]
     Active Substance: COCAINE HYDROCHLORIDE
     Indication: Product used for unknown indication
     Dosage: UNKNOWN
  2. ETHYLENE GLYCOL [Suspect]
     Active Substance: ETHYLENE GLYCOL
     Indication: Product used for unknown indication
     Dosage: UNKNOWN
  3. METHYL ALCOHOL [Suspect]
     Active Substance: METHYL ALCOHOL
     Indication: Product used for unknown indication
     Dosage: UNKNOWN

REACTIONS (2)
  - Death [Fatal]
  - Product use issue [Unknown]
